FAERS Safety Report 18606189 (Version 1)
Quarter: 2020Q4

REPORT INFORMATION
  Report Type: Report from Study
  Country: US (occurrence: US)
  Receive Date: 20201211
  Receipt Date: 20201211
  Transmission Date: 20210114
  Serious: Yes (Hospitalization)
  Sender: FDA-Public Use
  Company Number: US-KARYOPHARM-2020KPT001479

PATIENT
  Age: 64 Year
  Sex: Male
  Weight: 84.1 kg

DRUGS (8)
  1. PROTONIX [Concomitant]
     Active Substance: PANTOPRAZOLE SODIUM
     Indication: GASTRITIS
     Dosage: 40 MG, QD
     Route: 048
     Dates: start: 20200831
  2. LOMUSTINE. [Suspect]
     Active Substance: LOMUSTINE
     Indication: GLIOBLASTOMA
     Dosage: 90 MG/M2, 1X/6 WEEKS
     Route: 048
     Dates: start: 20201002
  3. SELINEXOR [Suspect]
     Active Substance: SELINEXOR
     Indication: GLIOBLASTOMA
     Dosage: 60 MG
     Route: 048
     Dates: start: 20201002
  4. DEXAMETHASONE. [Concomitant]
     Active Substance: DEXAMETHASONE
     Dosage: 2 UNK
     Route: 048
     Dates: start: 20201023
  5. DEXAMETHASONE. [Concomitant]
     Active Substance: DEXAMETHASONE
     Indication: DISTURBANCE IN ATTENTION
     Dosage: 2 MG, QD
     Dates: start: 20200927, end: 20201023
  6. ONDANSETRON [Concomitant]
     Active Substance: ONDANSETRON
     Indication: NAUSEA
     Dosage: 8 MG, TID
     Route: 048
     Dates: start: 20201002
  7. MIRALAX [Concomitant]
     Active Substance: POLYETHYLENE GLYCOL 3350
     Indication: CONSTIPATION
     Dosage: 17 MG, PRN
     Route: 048
     Dates: start: 20201003
  8. OLANZAPINE. [Concomitant]
     Active Substance: OLANZAPINE
     Indication: NAUSEA
     Dosage: 2.5 MG, QD
     Route: 048
     Dates: start: 20201002

REACTIONS (1)
  - Cellulitis [Unknown]

NARRATIVE: CASE EVENT DATE: 20021129
